FAERS Safety Report 8000547-5 (Version None)
Quarter: 2011Q4

REPORT INFORMATION
  Report Type: 
  Country: None (occurrence: None)
  Receive Date: 20111216
  Receipt Date: 20111202
  Transmission Date: 20120403
  Serious: Yes (Hospitalization)
  Sender: FDA-Public Use
  Company Number: JP-2011-11739

PATIENT
  Age: 71 Year
  Sex: Female

DRUGS (5)
  1. OPC-41061 (PC-41061) TABLET TOLVAPTAN [Suspect]
     Indication: HEPATIC CIRRHOSIS
     Dosage: 15 MG MILLIGRAM(S), QD, ORAL
     Route: 048
     Dates: start: 20111002, end: 20111008
  2. OPC-41061 (PC-41061) TABLET TOLVAPTAN [Suspect]
     Indication: ASCITES
     Dosage: 15 MG MILLIGRAM(S), QD, ORAL
     Route: 048
     Dates: start: 20111002, end: 20111008
  3. POLYENE PHOSPHATIDYL CHOLINE (POLYENE PHOSPHATIDYL CHOLINE) INJECTION) [Concomitant]
  4. MOXIFLOXACIN HYDROCHLORIDE (MOXIFLOXACIN HYDROCHLORIDE) TABLET [Concomitant]
  5. REDUCED GLUTAHIONE SODIUM (REDUCED GLUTAHIONE SODIUM) INJECTION [Concomitant]

REACTIONS (5)
  - RASH [None]
  - PRURITUS [None]
  - MACULE [None]
  - PYREXIA [None]
  - BODY TEMPERATURE DECREASED [None]
